FAERS Safety Report 25647868 (Version 1)
Quarter: 2025Q3

REPORT INFORMATION
  Report Type: Spontaneous
  Country: CN (occurrence: CN)
  Receive Date: 20250806
  Receipt Date: 20250806
  Transmission Date: 20251020
  Serious: Yes (Hospitalization)
  Sender: ABBVIE
  Company Number: CN-ABBVIE-6401377

PATIENT
  Age: 32 Year
  Sex: Male
  Weight: 61 kg

DRUGS (5)
  1. LOPINAVIR\RITONAVIR [Suspect]
     Active Substance: LOPINAVIR\RITONAVIR
     Indication: Acquired immunodeficiency syndrome
     Dosage: 2 TABLETS PO BID
     Route: 048
     Dates: start: 20190109, end: 20250720
  2. TENOFOVIR DISOPROXIL FUMARATE [Suspect]
     Active Substance: TENOFOVIR DISOPROXIL FUMARATE
     Indication: Acquired immunodeficiency syndrome
     Dosage: 0.3 GRAM?TABLETS
     Route: 048
     Dates: start: 20190109, end: 20250720
  3. LAMIVUDINE [Concomitant]
     Active Substance: LAMIVUDINE
     Indication: Acquired immunodeficiency syndrome
     Dosage: 0.3 GRAM  PO QD
     Route: 048
     Dates: start: 20190109, end: 20250720
  4. PHOSPHOLIPID [Concomitant]
     Active Substance: PHOSPHOLIPID
     Indication: Prophylaxis
  5. MAGNESIUM ISOGLYCYRRHIZINATE [Concomitant]
     Active Substance: MAGNESIUM ISOGLYCYRRHIZINATE
     Indication: Prophylaxis

REACTIONS (4)
  - Hepatic function abnormal [Recovering/Resolving]
  - Abdominal distension [Unknown]
  - Decreased appetite [Unknown]
  - Chromaturia [Unknown]

NARRATIVE: CASE EVENT DATE: 20250717
